FAERS Safety Report 9551691 (Version 1)
Quarter: 2013Q3

REPORT INFORMATION
  Report Type: Spontaneous
  Country: US (occurrence: None)
  Receive Date: 20130724
  Receipt Date: 20130724
  Transmission Date: 20140515
  Serious: Yes (Other)
  Sender: FDA-Public Use
  Company Number: PHEH2012US023369

PATIENT
  Age: 63 Year
  Sex: Male

DRUGS (8)
  1. DIOVAN HCT (VALSARTAN, HYDROCHLOROTHIAZIDE) UNKNOWN [Suspect]
     Indication: JOINT SWELLING
     Dosage: 1 DF, QD (160 MG VALS AND 12.5 MG HCTZ), ORAL
     Route: 048
  2. BENAZEPRIL (BENZEPRIL) [Concomitant]
  3. ACIPHEX (RABEPRAZOLE SODIUM) [Concomitant]
  4. PRAVASTAIN (PRAVASTAIN) [Concomitant]
  5. ZANTAC (RANITIDINE HYDROCHLORIDE) [Concomitant]
  6. XANAX (ALPRAZOLAM) [Concomitant]
  7. CARAFATE (SUCRALFATE) TABLET, 1G [Concomitant]
  8. VALSARTAN (VALSARTAN) [Concomitant]

REACTIONS (2)
  - Hyponatraemia [None]
  - Malaise [None]
